FAERS Safety Report 6268417-0 (Version None)
Quarter: 2009Q3

REPORT INFORMATION
  Report Type: 
  Country: None (occurrence: None)
  Receive Date: 20090715
  Receipt Date: 20070723
  Transmission Date: 20100115
  Serious: Yes (Other)
  Sender: FDA-Public Use
  Company Number: US-ASTRAZENECA-2006UW11081

PATIENT
  Age: 46 Year
  Sex: Female
  Weight: 108.5 kg

DRUGS (10)
  1. SEROQUEL [Suspect]
     Indication: DEPRESSION
     Route: 048
     Dates: start: 19980101, end: 20020101
  2. SEROQUEL [Suspect]
     Dosage: 200 - 600 MG BEFORE BED TIME
     Route: 048
     Dates: start: 20020205, end: 20060425
  3. ABILIFY [Concomitant]
     Dates: start: 20060101
  4. RISPERDAL [Concomitant]
  5. XANAX [Concomitant]
  6. PAXIL [Concomitant]
  7. AMBIEN [Concomitant]
     Dosage: 10-15 MG BEFORE BED TIME
     Dates: start: 20010214
  8. TRAZODONE HCL [Concomitant]
     Route: 048
     Dates: start: 20011218
  9. SINGULAIR [Concomitant]
     Route: 048
     Dates: start: 20010214
  10. PRAVACHOL [Concomitant]
     Route: 048
     Dates: start: 20010214

REACTIONS (3)
  - DIABETES MELLITUS [None]
  - DIABETIC NEUROPATHY [None]
  - TYPE 2 DIABETES MELLITUS [None]
